FAERS Safety Report 16318679 (Version 3)
Quarter: 2020Q1

REPORT INFORMATION
  Report Type: Spontaneous
  Country: US (occurrence: US)
  Receive Date: 20190516
  Receipt Date: 20200227
  Transmission Date: 20200409
  Serious: No
  Sender: FDA-Public Use
  Company Number: US-BIOGEN-2019BI00737551

PATIENT
  Sex: Male

DRUGS (1)
  1. PLEGRIDY [Suspect]
     Active Substance: PEGINTERFERON BETA-1A
     Indication: MULTIPLE SCLEROSIS
     Route: 065
     Dates: start: 20160525, end: 20170706

REACTIONS (4)
  - Hypoaesthesia [Not Recovered/Not Resolved]
  - Hyperhidrosis [Recovered/Resolved]
  - Influenza like illness [Recovered/Resolved]
  - Feeling abnormal [Unknown]
